FAERS Safety Report 13453919 (Version 2)
Quarter: 2017Q2

REPORT INFORMATION
  Report Type: Spontaneous
  Country: US (occurrence: US)
  Receive Date: 20170418
  Receipt Date: 20170612
  Transmission Date: 20170830
  Serious: No
  Sender: FDA-Public Use
  Company Number: US-CELGENEUS-USA-20170402451

PATIENT
  Age: 88 Year
  Sex: Female

DRUGS (3)
  1. CEFDINIR. [Concomitant]
     Active Substance: CEFDINIR
     Indication: EAR INFECTION
     Route: 065
     Dates: start: 20170410
  2. POMALYST [Suspect]
     Active Substance: POMALIDOMIDE
     Indication: PLASMA CELL MYELOMA
     Dosage: 4 MILLIGRAM
     Route: 048
     Dates: start: 201609
  3. POMALYST [Suspect]
     Active Substance: POMALIDOMIDE
     Dosage: 2 MILLIGRAM
     Route: 048
     Dates: start: 201611

REACTIONS (4)
  - Tympanic membrane perforation [Unknown]
  - Eye infection [Unknown]
  - Ear infection [Unknown]
  - Urinary tract infection [Unknown]

NARRATIVE: CASE EVENT DATE: 20170104
